FAERS Safety Report 20899971 (Version 1)
Quarter: 2022Q2

REPORT INFORMATION
  Report Type: Spontaneous
  Country: JP (occurrence: JP)
  Receive Date: 20220601
  Receipt Date: 20220601
  Transmission Date: 20220721
  Serious: Yes (Hospitalization, Other)
  Sender: FDA-Public Use
  Company Number: JP-NOVARTISPH-NVSJ2022JP091072

PATIENT
  Age: 82 Year
  Sex: Female

DRUGS (1)
  1. METHOTREXATE [Suspect]
     Active Substance: METHOTREXATE
     Indication: Rheumatoid arthritis
     Dosage: UNK, DAILY
     Route: 048

REACTIONS (11)
  - Stomatitis [Recovering/Resolving]
  - Eating disorder [Recovering/Resolving]
  - Dysphagia [Recovering/Resolving]
  - Oropharyngeal discomfort [Unknown]
  - Dyspnoea [Unknown]
  - Lip oedema [Unknown]
  - Febrile neutropenia [Unknown]
  - Myelosuppression [Unknown]
  - Pancytopenia [Unknown]
  - Overdose [Unknown]
  - Intentional product misuse [Unknown]
